FAERS Safety Report 26093861 (Version 1)
Quarter: 2025Q4

REPORT INFORMATION
  Report Type: Spontaneous
  Country: US (occurrence: US)
  Receive Date: 20251126
  Receipt Date: 20251126
  Transmission Date: 20260118
  Serious: No
  Sender: GLENMARK
  Company Number: US-GLENMARK PHARMACEUTICALS-2024GMK094978

PATIENT

DRUGS (1)
  1. OXCARBAZEPINE [Suspect]
     Active Substance: OXCARBAZEPINE
     Indication: Epilepsy
     Dosage: 600 MILLIGRAM, QD (ONE TABLET A DAY.)
     Route: 048

REACTIONS (7)
  - Head titubation [Unknown]
  - Vision blurred [Unknown]
  - Disturbance in attention [Unknown]
  - Visual impairment [Unknown]
  - Tremor [Unknown]
  - Thinking abnormal [Unknown]
  - Product substitution issue [Unknown]
